FAERS Safety Report 10046531 (Version 1)
Quarter: 2014Q1

REPORT INFORMATION
  Report Type: Report from Study
  Country: US (occurrence: US)
  Receive Date: 20140331
  Receipt Date: 20140331
  Transmission Date: 20141002
  Serious: Yes (Hospitalization, Other)
  Sender: FDA-Public Use
  Company Number: US-BRISTOL-MYERS SQUIBB COMPANY-20567475

PATIENT
  Age: 64 Year
  Sex: Male
  Weight: 58.4 kg

DRUGS (1)
  1. IPILIMUMAB [Suspect]
     Indication: HAEMATOLOGICAL MALIGNANCY
     Dosage: TOTAL DOSE 592MG?LAST ADMINISTERED DATE:2/25/2014
     Route: 042
     Dates: start: 20140225

REACTIONS (3)
  - Hyponatraemia [Recovering/Resolving]
  - Platelet count decreased [Recovering/Resolving]
  - Pyrexia [Recovering/Resolving]
